FAERS Safety Report 13261382 (Version 1)
Quarter: 2017Q1

REPORT INFORMATION
  Report Type: Spontaneous
  Country: US (occurrence: US)
  Receive Date: 20170222
  Receipt Date: 20170222
  Transmission Date: 20170428
  Serious: No
  Sender: FDA-Public Use
  Company Number: US-PFIZER INC-2017076756

PATIENT
  Sex: Female

DRUGS (1)
  1. ADVIL [Suspect]
     Active Substance: IBUPROFEN
     Indication: HEADACHE
     Dosage: TWO AND A HALF IN THE MORNING OR TWO IN THE MORNING, AT 9 IN THE MORNING TWO MORE

REACTIONS (2)
  - Muscle spasms [Unknown]
  - Intentional product use issue [Unknown]
